FAERS Safety Report 4808872-3 (Version None)
Quarter: 2005Q4

REPORT INFORMATION
  Report Type: 
  Country: None (occurrence: None)
  Receive Date: 20051025
  Receipt Date: 20051014
  Transmission Date: 20060501
  Serious: Yes (Other)
  Sender: FDA-Public Use
  Company Number: GB-JNJFOC-20051003885

PATIENT
  Age: 14 Year

DRUGS (1)
  1. RISPERDAL [Suspect]

REACTIONS (2)
  - BLOOD BILIRUBIN INCREASED [None]
  - OFF LABEL USE [None]
